FAERS Safety Report 6280224-1 (Version None)
Quarter: 2009Q3

REPORT INFORMATION
  Report Type: 
  Country: None (occurrence: None)
  Receive Date: 20090723
  Receipt Date: 20090714
  Transmission Date: 20100115
  Serious: Yes (Hospitalization)
  Sender: FDA-Public Use
  Company Number: DE-MERCK-0710DEU00296

PATIENT
  Age: 76 Year
  Sex: Female

DRUGS (5)
  1. HYZAAR [Suspect]
     Route: 048
     Dates: start: 20070101, end: 20070101
  2. HYZAAR [Suspect]
     Route: 048
     Dates: end: 20070101
  3. HYZAAR [Suspect]
     Route: 048
     Dates: start: 20070101
  4. COZAAR [Suspect]
     Route: 048
     Dates: start: 19990101
  5. DIURETIC (UNSPECIFIED) [Concomitant]
     Route: 065
     Dates: start: 19990101

REACTIONS (23)
  - ADVERSE EVENT [None]
  - ALOPECIA [None]
  - BLOOD CREATININE INCREASED [None]
  - BLOOD GLUCOSE INCREASED [None]
  - BRONCHITIS [None]
  - CARDIAC PACEMAKER MALFUNCTION [None]
  - DYSPNOEA [None]
  - FATIGUE [None]
  - GAMMA-GLUTAMYLTRANSFERASE INCREASED [None]
  - HEPATIC CONGESTION [None]
  - HEPATIC MASS [None]
  - HYPOACUSIS [None]
  - INFERIOR VENA CAVAL OCCLUSION [None]
  - LIVER DISORDER [None]
  - MALAISE [None]
  - OEDEMA [None]
  - PLEURAL EFFUSION [None]
  - RENAL CYST [None]
  - RENAL DISORDER [None]
  - SCIATICA [None]
  - URINARY RETENTION [None]
  - VISUAL ACUITY REDUCED [None]
  - WRONG TECHNIQUE IN DRUG USAGE PROCESS [None]
